FAERS Safety Report 19005255 (Version 6)
Quarter: 2022Q1

REPORT INFORMATION
  Report Type: Report from Study
  Country: CA (occurrence: CA)
  Receive Date: 20210313
  Receipt Date: 20220228
  Transmission Date: 20220423
  Serious: Yes (Hospitalization, Other)
  Sender: FDA-Public Use
  Company Number: CA-ABBVIE-21K-028-3811854-00

PATIENT
  Age: 49 Year
  Sex: Male

DRUGS (1)
  1. SKYRIZI [Suspect]
     Active Substance: RISANKIZUMAB-RZAA
     Indication: Psoriasis
     Route: 058
     Dates: start: 20190627, end: 20210727

REACTIONS (16)
  - Liver disorder [Unknown]
  - Coronary artery thrombosis [Unknown]
  - Inflammation [Unknown]
  - COVID-19 [Recovered/Resolved]
  - General physical health deterioration [Unknown]
  - COVID-19 [Unknown]
  - COVID-19 [Recovered/Resolved]
  - Infection [Unknown]
  - Skin disorder [Unknown]
  - Glucose tolerance impaired [Unknown]
  - Blood cholesterol increased [Unknown]
  - Liver disorder [Not Recovered/Not Resolved]
  - Cerebral disorder [Not Recovered/Not Resolved]
  - Hepatic function abnormal [Unknown]
  - Dyspnoea [Not Recovered/Not Resolved]
  - Drug ineffective [Unknown]

NARRATIVE: CASE EVENT DATE: 20200201
